FAERS Safety Report 8872310 (Version 1)
Quarter: 2012Q4

REPORT INFORMATION
  Report Type: 
  Country: CA (occurrence: CA)
  Receive Date: 20121029
  Receipt Date: 20121029
  Transmission Date: 20130627
  Serious: Yes (Hospitalization, Other)
  Sender: FDA-Public Use
  Company Number: PHMT2007CA00637

PATIENT
  Sex: Female
  Weight: 43.08 kg

DRUGS (5)
  1. SANDOSTATIN LAR [Suspect]
     Indication: DIARRHOEA
     Dosage: 30 mg, once a month
     Route: 030
     Dates: start: 20050720, end: 20070510
  2. EPREX [Concomitant]
  3. METFORMIN [Concomitant]
     Dosage: UNK UKN, BID
  4. MORPHINE [Concomitant]
     Route: 003
  5. NEUPOGEN [Concomitant]

REACTIONS (18)
  - Platelet count decreased [Not Recovered/Not Resolved]
  - Renal impairment [Unknown]
  - Oliguria [Unknown]
  - Bronchitis [Unknown]
  - Chills [Unknown]
  - Pyrexia [Unknown]
  - Dyspnoea [Unknown]
  - Lymphoma [Unknown]
  - Abdominal rigidity [Unknown]
  - Abdominal distension [Recovering/Resolving]
  - Faeces discoloured [Unknown]
  - Anaemia [Unknown]
  - Haemoglobin decreased [Unknown]
  - Abdominal pain [Recovering/Resolving]
  - Blood glucose fluctuation [Unknown]
  - Weight increased [Unknown]
  - Confusional state [Unknown]
  - Diarrhoea [Unknown]
